FAERS Safety Report 7459227-7 (Version None)
Quarter: 2011Q2

REPORT INFORMATION
  Report Type: 
  Country: None (occurrence: None)
  Receive Date: 20110505
  Receipt Date: 20110421
  Transmission Date: 20111010
  Serious: Yes (Other)
  Sender: FDA-Public Use
  Company Number: IN-RANBAXY-2011RR-44106

PATIENT
  Age: 42 Year
  Sex: Male

DRUGS (10)
  1. PROPRANOLOL [Suspect]
     Indication: SCHIZOPHRENIA
  2. QUETIAPINE [Suspect]
     Indication: SCHIZOPHRENIA
  3. WARFARIN SODIUM [Suspect]
     Indication: DEEP VEIN THROMBOSIS
  4. FENOFIBRATE [Suspect]
     Indication: DYSLIPIDAEMIA
  5. QUETIAPINE [Suspect]
     Indication: DEPRESSION
  6. DICLOFENAC [Suspect]
     Indication: PAIN
  7. PROPRANOLOL [Suspect]
     Indication: DEPRESSION
  8. CITALOPRAM [Suspect]
  9. ASPIRIN [Suspect]
     Indication: DEEP VEIN THROMBOSIS
  10. ATORVASTATIN [Suspect]
     Indication: DYSLIPIDAEMIA

REACTIONS (9)
  - PAIN [None]
  - ECCHYMOSIS [None]
  - HAEMORRHAGE [None]
  - SPINAL HAEMATOMA [None]
  - PARAPARESIS [None]
  - BACK PAIN [None]
  - LOSS OF BLADDER SENSATION [None]
  - PURPURA [None]
  - DRUG INTERACTION [None]
